FAERS Safety Report 9513907 (Version 1)
Quarter: 2013Q1

REPORT INFORMATION
  Report Type: Spontaneous
  Country: US (occurrence: None)
  Receive Date: 20130305
  Receipt Date: 20130305
  Transmission Date: 20140127
  Serious: Yes (Hospitalization)
  Sender: FDA-Public Use
  Company Number: 163-21880-12043047

PATIENT
  Age: 69 Year
  Sex: Female
  Weight: 90.72 kg

DRUGS (16)
  1. REVLIMID (LENALIDOMIDE) [Suspect]
     Indication: MYELODYSPLASTIC SYNDROME
     Dates: start: 20111213
  2. EFFEXOR XR (VENLAFAXINE HYDROCHLORIDE) (75 MILLIGRAM, CAPSULE) (VENLAFAXINE HYDROCHLORIDE) [Concomitant]
  3. MULTIPLE VITAMIN (VITAMINS WITH MINERALS) [Concomitant]
  4. FLUTICASONE PROP (FLUTICASONE PROPIONATE) (SRAY (NOT INHALATION)) [Concomitant]
  5. ASPIRIN (ACETYLSALICYLI ACID) [Concomitant]
  6. FUROSEMIDE (FUROSEMIDE) [Concomitant]
  7. PREVACID DR (LANSOPRAZOLE) [Concomitant]
  8. ALENDRONATE SODIUM (ALENDRONATE SODIUM) [Concomitant]
  9. ACETAMINOPHEN\HYDROCODONE BITARTRATE [Concomitant]
  10. CARVEDILOL (CARVEDILOL) [Concomitant]
  11. MICRO-K (POTASSIUM CHLORIDE) [Concomitant]
  12. METOLAZONE (METOLAZONE) [Concomitant]
  13. WARFARIN SODIUM (WARFARIN SODIUM) [Concomitant]
  14. COMBIVENT INHALER (COMBIVENT) [Concomitant]
  15. SYMBICORT (SYMBICORT TURBUHALER ^DRACO^) [Concomitant]
  16. COMBIVENT (COMBIVENT) [Concomitant]

REACTIONS (3)
  - Pneumonia [None]
  - Cough [None]
  - Dyspnoea [None]
